FAERS Safety Report 24089759 (Version 1)
Quarter: 2024Q3

REPORT INFORMATION
  Report Type: Report from Study
  Country: IN (occurrence: IN)
  Receive Date: 20240715
  Receipt Date: 20240715
  Transmission Date: 20241017
  Serious: Yes (Other)
  Sender: NOVARTIS
  Company Number: IN-002147023-NVSC2024IN143806

PATIENT
  Age: 33 Year
  Sex: Male

DRUGS (2)
  1. CERTICAN [Suspect]
     Active Substance: EVEROLIMUS
     Indication: Renal transplant
     Dosage: UNK, BID
     Route: 048
     Dates: start: 2016
  2. MYFORTIC [Concomitant]
     Active Substance: MYCOPHENOLATE SODIUM
     Indication: Product used for unknown indication
     Dosage: 360 MG, BID
     Route: 065

REACTIONS (9)
  - Osteonecrosis [Unknown]
  - Transplant rejection [Unknown]
  - Seizure [Unknown]
  - Hip deformity [Unknown]
  - Joint space narrowing [Unknown]
  - Cytomegalovirus infection [Unknown]
  - Herpes simplex [Unknown]
  - Hyperuricaemia [Unknown]
  - Hypertension [Unknown]

NARRATIVE: CASE EVENT DATE: 20160521
